FAERS Safety Report 10594839 (Version 1)
Quarter: 2014Q4

REPORT INFORMATION
  Report Type: Spontaneous
  Country: GB (occurrence: GB)
  Receive Date: 20141120
  Receipt Date: 20141120
  Transmission Date: 20150529
  Serious: Yes (Hospitalization, Other)
  Sender: FDA-Public Use
  Company Number: GB-AMGEN-GBRSP2014089101

PATIENT
  Sex: Female

DRUGS (1)
  1. PROLIA [Suspect]
     Active Substance: DENOSUMAB
     Indication: PRODUCT USED FOR UNKNOWN INDICATION
     Dosage: UNK
     Route: 065
     Dates: start: 201410

REACTIONS (11)
  - Rash pruritic [Unknown]
  - Feeding disorder [Unknown]
  - Asthenia [Unknown]
  - Rash generalised [Not Recovered/Not Resolved]
  - General physical health deterioration [Not Recovered/Not Resolved]
  - Fall [Unknown]
  - Drug hypersensitivity [Unknown]
  - Malaise [Unknown]
  - Cough [Unknown]
  - Renal impairment [Unknown]
  - Blister [Unknown]

NARRATIVE: CASE EVENT DATE: 201410
